FAERS Safety Report 4864418-5 (Version None)
Quarter: 2005Q4

REPORT INFORMATION
  Report Type: 
  Country: None (occurrence: None)
  Receive Date: 20051222
  Receipt Date: 20051216
  Transmission Date: 20060501
  Serious: Yes (Hospitalization)
  Sender: FDA-Public Use
  Company Number: US-MERCK-0512USA03161

PATIENT
  Age: 62 Year
  Sex: Female
  Weight: 68 kg

DRUGS (5)
  1. VIOXX [Suspect]
     Indication: PAIN
     Route: 048
     Dates: start: 20030101, end: 20040901
  2. PRINIVIL [Concomitant]
     Route: 065
  3. ZOCOR [Concomitant]
     Route: 065
  4. GLUCOPHAGE [Concomitant]
     Route: 065
  5. GLUCOTROL [Concomitant]
     Route: 065

REACTIONS (2)
  - LOSS OF CONSCIOUSNESS [None]
  - TRANSIENT ISCHAEMIC ATTACK [None]
